FAERS Safety Report 8955631 (Version 3)
Quarter: 2013Q2

REPORT INFORMATION
  Report Type: Report from Study
  Country: AU (occurrence: AU)
  Receive Date: 20121207
  Receipt Date: 20130531
  Transmission Date: 20140414
  Serious: Yes (Death, Hospitalization, Other)
  Sender: FDA-Public Use
  Company Number: AU-ROCHE-1162382

PATIENT
  Age: 52 Year
  Sex: Female

DRUGS (1)
  1. ZELBORAF [Suspect]
     Indication: MALIGNANT MELANOMA
     Route: 048
     Dates: start: 20120619

REACTIONS (4)
  - Death [Fatal]
  - Brain mass [Unknown]
  - Headache [Recovered/Resolved]
  - Somnolence [Unknown]
